FAERS Safety Report 4491164-2 (Version None)
Quarter: 2004Q3

REPORT INFORMATION
  Report Type: 
  Country: None (occurrence: None)
  Receive Date: 20040927
  Receipt Date: 20040729
  Transmission Date: 20050211
  Serious: No
  Sender: FDA-Public Use
  Company Number: USA040774128

PATIENT
  Age: 57 Year
  Sex: Male
  Weight: 100 kg

DRUGS (4)
  1. STRATTERA [Suspect]
     Indication: ATTENTION DEFICIT/HYPERACTIVITY DISORDER
     Dosage: 40 MG DAY
     Dates: start: 20040728
  2. CIALIS [Concomitant]
  3. LIPITOR [Concomitant]
  4. LEXAPRO [Concomitant]

REACTIONS (3)
  - AGITATION [None]
  - RESTLESSNESS [None]
  - URINE FLOW DECREASED [None]
